FAERS Safety Report 13000891 (Version 2)
Quarter: 2017Q1

REPORT INFORMATION
  Report Type: Report from Study
  Country: US (occurrence: US)
  Receive Date: 20161206
  Receipt Date: 20170301
  Transmission Date: 20170428
  Serious: No
  Sender: FDA-Public Use
  Company Number: US-AMGEN-USASL2016169998

PATIENT
  Age: 25 Year
  Sex: Male

DRUGS (3)
  1. ENBREL [Suspect]
     Active Substance: ETANERCEPT
     Indication: PRURITUS
  2. ENBREL [Suspect]
     Active Substance: ETANERCEPT
     Indication: SWELLING
  3. ENBREL [Suspect]
     Active Substance: ETANERCEPT
     Indication: SKIN HAEMORRHAGE
     Dosage: UNK
     Route: 065
     Dates: start: 2016

REACTIONS (1)
  - Off label use [Unknown]

NARRATIVE: CASE EVENT DATE: 2016
